FAERS Safety Report 7549264-6 (Version None)
Quarter: 2011Q2

REPORT INFORMATION
  Report Type: 
  Country: None (occurrence: None)
  Receive Date: 20110615
  Receipt Date: 20110615
  Transmission Date: 20111010
  Serious: Yes (Hospitalization)
  Sender: FDA-Public Use
  Company Number: PHHO1998IT12511

PATIENT
  Sex: Male
  Weight: 61 kg

DRUGS (5)
  1. METHYLPREDNISOLONE [Suspect]
     Route: 048
     Dates: start: 19980330, end: 19980626
  2. IMURAN [Suspect]
     Route: 048
     Dates: start: 19980329
  3. PLACEBO [Suspect]
     Dosage: UNSPECIFIED
     Route: 042
     Dates: start: 19980327, end: 19980331
  4. NEORAL [Suspect]
     Route: 048
     Dates: start: 19980406, end: 19980524
  5. NEORAL [Suspect]
     Route: 048
     Dates: start: 19980518, end: 19980524

REACTIONS (2)
  - ENTEROCOLITIS [None]
  - DIARRHOEA [None]
